FAERS Safety Report 18706070 (Version 12)
Quarter: 2022Q2

REPORT INFORMATION
  Report Type: Report from Study
  Country: BE (occurrence: BE)
  Receive Date: 20210106
  Receipt Date: 20220425
  Transmission Date: 20220721
  Serious: Yes (Hospitalization, Other)
  Sender: FDA-Public Use
  Company Number: BE-BAYER-2020-283002

PATIENT
  Age: 73 Year
  Sex: Male
  Weight: 86 kg

DRUGS (43)
  1. RIVAROXABAN [Suspect]
     Active Substance: RIVAROXABAN
     Indication: Coronary artery disease
     Dosage: 2.5 MG, BID
     Route: 048
     Dates: start: 20200706, end: 20210110
  2. RIVAROXABAN [Suspect]
     Active Substance: RIVAROXABAN
     Indication: Peripheral arterial occlusive disease
     Dosage: 2.5 MG, BID
     Route: 048
     Dates: start: 20210116, end: 20210201
  3. RIVAROXABAN [Suspect]
     Active Substance: RIVAROXABAN
     Indication: Coronary artery disease
     Dosage: 2.5 MG, BID
     Route: 048
     Dates: start: 20210203
  4. ASPIRIN [Suspect]
     Active Substance: ASPIRIN
     Indication: Coronary artery disease
     Dosage: 80 MG, QD
     Route: 065
     Dates: start: 20170210
  5. ASPIRIN [Suspect]
     Active Substance: ASPIRIN
     Indication: Peripheral arterial occlusive disease
  6. AMIODARONE [Concomitant]
     Active Substance: AMIODARONE
     Dosage: 200 MG, QD
     Dates: start: 20160822, end: 20201220
  7. METHIMAZOLE [Concomitant]
     Active Substance: METHIMAZOLE
     Dosage: 10 MG, TID
     Dates: start: 20201220, end: 20210222
  8. TRAMADOL [Concomitant]
     Active Substance: TRAMADOL
     Dosage: 100 MG, PRN
     Dates: start: 20201223
  9. PROPYLTHIOURACIL [Concomitant]
     Active Substance: PROPYLTHIOURACIL
     Dosage: 100 MG, QD
     Dates: start: 20210202, end: 20210205
  10. PROPYLTHIOURACIL [Concomitant]
     Active Substance: PROPYLTHIOURACIL
     Dosage: 100 MG, TID
     Dates: start: 20210222, end: 20210602
  11. PROPYLTHIOURACIL [Concomitant]
     Active Substance: PROPYLTHIOURACIL
     Dosage: 150 MG, TID
     Dates: start: 20210603
  12. BUMETANIDE [Concomitant]
     Active Substance: BUMETANIDE
     Dosage: UNK
  13. CELECOXIB [Concomitant]
     Active Substance: CELECOXIB
     Dosage: 100 MG, BID
     Dates: start: 20190624, end: 20200706
  14. ATORVASTATIN [Concomitant]
     Active Substance: ATORVASTATIN
     Dosage: 80 MG, QD
     Dates: start: 20170911, end: 20200705
  15. METHYLPREDNISOLONE [Concomitant]
     Active Substance: METHYLPREDNISOLONE
     Dosage: 16 MG, QD
     Dates: start: 20210201
  16. METHYLPREDNISOLONE [Concomitant]
     Active Substance: METHYLPREDNISOLONE
     Dosage: 16 MG, QD
     Dates: start: 20210309, end: 202103
  17. METHYLPREDNISOLONE [Concomitant]
     Active Substance: METHYLPREDNISOLONE
     Dosage: 4 MG, TID
     Route: 048
     Dates: start: 20210428, end: 20210512
  18. METHYLPREDNISOLONE [Concomitant]
     Active Substance: METHYLPREDNISOLONE
     Dosage: 4 MG, BID
     Dates: start: 20210513
  19. METHYLPREDNISOLONE [Concomitant]
     Active Substance: METHYLPREDNISOLONE
     Dosage: 32 MG, QD
     Dates: start: 20210202, end: 20210222
  20. METHYLPREDNISOLONE [Concomitant]
     Active Substance: METHYLPREDNISOLONE
     Dosage: 24 MG, QD
     Dates: start: 20210223, end: 20210308
  21. METHYLPREDNISOLONE [Concomitant]
     Active Substance: METHYLPREDNISOLONE
     Dosage: 32 MG, QD
     Dates: start: 202103, end: 20210324
  22. METHYLPREDNISOLONE [Concomitant]
     Active Substance: METHYLPREDNISOLONE
     Dosage: 16 MG, QD
     Dates: start: 20210325, end: 20210428
  23. METHYLPREDNISOLONE [Concomitant]
     Active Substance: METHYLPREDNISOLONE
     Dosage: 12 MG, QD
     Dates: start: 20210429, end: 20210512
  24. METHYLPREDNISOLONE [Concomitant]
     Active Substance: METHYLPREDNISOLONE
     Dosage: 8 MG, QD
     Dates: start: 20210513
  25. EZETIMIBE [Concomitant]
     Active Substance: EZETIMIBE
     Dosage: 10 MG, QD
     Dates: start: 20200706
  26. ROSUVASTATIN [Concomitant]
     Active Substance: ROSUVASTATIN
     Dosage: 40 MG, QD
     Dates: start: 20200706
  27. IVABRADINE [Concomitant]
     Active Substance: IVABRADINE
     Dosage: 5 MG, BID
     Dates: start: 20140325
  28. SPIRONOLACTONE [Concomitant]
     Active Substance: SPIRONOLACTONE
     Dosage: 25 MG, QD
     Dates: start: 20180228
  29. VALSARTAN [Concomitant]
     Active Substance: VALSARTAN
     Dosage: 103 MG, BID
     Dates: start: 20190107
  30. SACUBITRIL [Concomitant]
     Active Substance: SACUBITRIL
     Dosage: 97 MG, BID
     Dates: start: 20190107
  31. METFORMIN HYDROCHLORIDE [Concomitant]
     Active Substance: METFORMIN HYDROCHLORIDE
     Dosage: 850 MG, QD
     Dates: start: 20200722, end: 20210205
  32. METFORMIN HYDROCHLORIDE [Concomitant]
     Active Substance: METFORMIN HYDROCHLORIDE
     Dosage: 425 MG, QD
     Dates: start: 20140120, end: 20200722
  33. BUMETANIDE [Concomitant]
     Active Substance: BUMETANIDE
     Dosage: 2.5 MG, BID
     Dates: start: 20180302, end: 20210205
  34. BUMETANIDE [Concomitant]
     Active Substance: BUMETANIDE
     Dosage: 2.5 MG, QD
     Route: 048
     Dates: start: 20210205
  35. SITAGLIPTIN [Concomitant]
     Active Substance: SITAGLIPTIN
     Dosage: 100 MG, QD
     Dates: start: 20140120, end: 20200722
  36. SITAGLIPTIN [Concomitant]
     Active Substance: SITAGLIPTIN
     Dosage: 50 MG, QD
     Dates: start: 20200722
  37. PANTOPRAZOLE [Concomitant]
     Active Substance: PANTOPRAZOLE
     Dosage: 40 MG, BID
     Dates: start: 20210112
  38. PANTOPRAZOLE [Concomitant]
     Active Substance: PANTOPRAZOLE
     Dosage: 40 MG, QD
     Dates: start: 20140112, end: 20210112
  39. ACETAMINOPHEN [Concomitant]
     Active Substance: ACETAMINOPHEN
     Dosage: 1 G, AS NEEDED
     Dates: start: 20201223
  40. ACETAMINOPHEN [Concomitant]
     Active Substance: ACETAMINOPHEN
     Dosage: 1 G, PRN
     Dates: start: 20201223
  41. ACETAMINOPHEN [Concomitant]
     Active Substance: ACETAMINOPHEN
     Dosage: 40 MG, QD
     Dates: start: 20140112, end: 20210112
  42. PROPOFOL [Concomitant]
     Active Substance: PROPOFOL
     Dosage: 500 MG, QD
     Dates: start: 20210112, end: 20210112
  43. DARBEPOETIN ALFA [Concomitant]
     Active Substance: DARBEPOETIN ALFA
     Dosage: 0.2 MG/ML,OTHER
     Dates: start: 20210201

REACTIONS (4)
  - Intervertebral disc protrusion [Unknown]
  - Lumbar spinal stenosis [Not Recovered/Not Resolved]
  - Anaemia [Recovering/Resolving]
  - Hyperthyroidism [Recovered/Resolved]

NARRATIVE: CASE EVENT DATE: 20201219
